FAERS Safety Report 24396703 (Version 1)
Quarter: 2024Q4

REPORT INFORMATION
  Report Type: Report from Study
  Country: US (occurrence: US)
  Receive Date: 20241004
  Receipt Date: 20241004
  Transmission Date: 20250114
  Serious: Yes (Other)
  Sender: ETON PHARMACEUTICALS
  Company Number: US-ETON PHARMACEUTICALS, INC-2024ETO000249

PATIENT

DRUGS (3)
  1. ALKINDI SPRINKLE [Suspect]
     Active Substance: HYDROCORTISONE
     Indication: Adrenocortical insufficiency acute
     Dosage: 1 MILLIGRAM, BID
     Route: 048
     Dates: start: 20240912, end: 20240916
  2. LEVOCARNITINE [Concomitant]
     Active Substance: LEVOCARNITINE
     Indication: Product used for unknown indication
  3. HYDROCORTISONE [Concomitant]
     Active Substance: HYDROCORTISONE
     Indication: Product used for unknown indication
     Dosage: UNK
     Dates: start: 20240917

REACTIONS (1)
  - Choking [Unknown]

NARRATIVE: CASE EVENT DATE: 20240901
